FAERS Safety Report 9838529 (Version 2)
Quarter: 2014Q1

REPORT INFORMATION
  Report Type: Spontaneous
  Country: US (occurrence: US)
  Receive Date: 20140123
  Receipt Date: 20140123
  Transmission Date: 20141002
  Serious: No
  Sender: FDA-Public Use
  Company Number: US-ASTELLAS-2013US008135

PATIENT
  Age: 65 Year
  Sex: Female

DRUGS (2)
  1. TARCEVA [Suspect]
     Indication: RECTAL CANCER
     Dosage: 150 MG, UID/QD
     Route: 048
     Dates: start: 2008
  2. TARCEVA [Suspect]
     Dosage: 50 MG, UID/QD
     Route: 048

REACTIONS (9)
  - Off label use [Unknown]
  - Incorrect product storage [Unknown]
  - Tinnitus [Unknown]
  - Hypoaesthesia [Unknown]
  - Dry throat [Unknown]
  - Nasal dryness [Unknown]
  - Epistaxis [Unknown]
  - Rash [Recovered/Resolved]
  - Acne [Recovered/Resolved]
